FAERS Safety Report 7560670-6 (Version None)
Quarter: 2011Q2

REPORT INFORMATION
  Report Type: 
  Country: None (occurrence: None)
  Receive Date: 20110614
  Receipt Date: 20110602
  Transmission Date: 20111010
  Serious: Yes (Other)
  Sender: FDA-Public Use
  Company Number: JP-2011-10755

PATIENT
  Age: 87 Year
  Sex: Male
  Weight: 58 kg

DRUGS (4)
  1. LASIX [Concomitant]
  2. TANATRIL (IMIDAPRIL HYDROCHLORIDE) TABLET [Concomitant]
  3. ALDACTONE [Concomitant]
  4. SAMSCA [Suspect]
     Indication: CARDIAC FAILURE
     Dosage: 7.5 MG MILLIGRAM(S), QD, ORAL
     Route: 048
     Dates: start: 20110418, end: 20110419

REACTIONS (1)
  - HYPERNATRAEMIA [None]
